FAERS Safety Report 22053256 (Version 2)
Quarter: 2023Q2

REPORT INFORMATION
  Report Type: Report from Study
  Country: FR (occurrence: FR)
  Receive Date: 20230302
  Receipt Date: 20230419
  Transmission Date: 20230721
  Serious: Yes (Hospitalization)
  Sender: FDA-Public Use
  Company Number: FR-FEDR-MF-002-2581002-20200330-0001SG

PATIENT
  Age: 80 Year
  Sex: Female
  Weight: 57 kg

DRUGS (8)
  1. ACUPAN [Concomitant]
     Active Substance: NEFOPAM HYDROCHLORIDE
     Indication: Product used for unknown indication
     Dosage: 20 MG
     Route: 048
     Dates: start: 20200113
  2. GAVISCON [MAGNESIUM ALGINATE;SODIUM ALGINATE] [Concomitant]
     Indication: Abdominal pain upper
     Dosage: 1 TABLET
     Route: 048
     Dates: start: 20200309
  3. IMODIUM [Concomitant]
     Active Substance: LOPERAMIDE HYDROCHLORIDE
     Indication: Prophylaxis
     Dosage: UNKNOWN MG
     Route: 048
     Dates: start: 20200210
  4. ACETAMINOPHEN [Concomitant]
     Active Substance: ACETAMINOPHEN
     Indication: Product used for unknown indication
     Dosage: 1 G
     Route: 048
     Dates: start: 20200113
  5. PREDNISONE [Concomitant]
     Active Substance: PREDNISONE
     Indication: Prophylaxis
     Dosage: 5 MG
     Dates: start: 20200113, end: 20200210
  6. PRIMPERAN [Concomitant]
     Active Substance: METOCLOPRAMIDE HYDROCHLORIDE
     Indication: Nausea
     Dosage: 10 MG?FREQUENCY : PRN
     Route: 048
     Dates: start: 20200404
  7. ONDANSETRON [Concomitant]
     Active Substance: ONDANSETRON
     Indication: Nausea
     Dosage: 8 MG?FREQUENCY : PRN
     Route: 048
     Dates: start: 20200309, end: 20200403
  8. SOLUPRED [Concomitant]
     Indication: Prophylaxis
     Dosage: 40 MG X 1 X 1 MONTHS
     Route: 048
     Dates: start: 20200404

REACTIONS (1)
  - Vitamin B1 deficiency [Recovered/Resolved]

NARRATIVE: CASE EVENT DATE: 20200309
